FAERS Safety Report 25285208 (Version 1)
Quarter: 2025Q2

REPORT INFORMATION
  Report Type: Report from Study
  Country: CA (occurrence: CA)
  Receive Date: 20250509
  Receipt Date: 20250509
  Transmission Date: 20250717
  Serious: Yes (Hospitalization)
  Sender: ABBVIE
  Company Number: CA-ABBVIE-6080344

PATIENT
  Age: 67 Year
  Sex: Male

DRUGS (1)
  1. VENCLEXTA [Suspect]
     Active Substance: VENETOCLAX
     Indication: Chronic lymphocytic leukaemia
     Dosage: FORM STRENGTH 100 MG TABLET
     Route: 048
     Dates: start: 20211120, end: 20250408

REACTIONS (5)
  - Pseudomonas infection [Unknown]
  - Oedema peripheral [Unknown]
  - Herpes zoster [Not Recovered/Not Resolved]
  - Skin ulcer [Unknown]
  - Wound [Unknown]

NARRATIVE: CASE EVENT DATE: 20241001
